FAERS Safety Report 4726848-1 (Version None)
Quarter: 2005Q3

REPORT INFORMATION
  Report Type: 
  Country: None (occurrence: None)
  Receive Date: 20050726
  Receipt Date: 20050713
  Transmission Date: 20060218
  Serious: Yes (Hospitalization, Other)
  Sender: FDA-Public Use
  Company Number: HQWYE477423AUG04

PATIENT
  Age: 69 Year
  Sex: Male

DRUGS (3)
  1. RAPAMUNE [Suspect]
     Indication: PROPHYLAXIS AGAINST TRANSPLANT REJECTION
     Dosage: ORAL; DECREASED DOSE NOT PROVIDED; ORAL
     Route: 048
     Dates: start: 19990709, end: 20040101
  2. RAPAMUNE [Suspect]
     Indication: PROPHYLAXIS AGAINST TRANSPLANT REJECTION
     Dosage: ORAL; DECREASED DOSE NOT PROVIDED; ORAL
     Route: 048
     Dates: start: 20040101
  3. CYCLOSPORINE [Concomitant]

REACTIONS (4)
  - C-REACTIVE PROTEIN INCREASED [None]
  - CHEST WALL MASS [None]
  - PLEURAL EFFUSION [None]
  - PNEUMONIA [None]
